FAERS Safety Report 7664625-2 (Version None)
Quarter: 2011Q3

REPORT INFORMATION
  Report Type: 
  Country: None (occurrence: None)
  Receive Date: 20110806
  Receipt Date: 20110106
  Transmission Date: 20111222
  Serious: No
  Sender: FDA-Public Use
  Company Number: US-ABBOTT-11P-163-0695758-00

PATIENT
  Sex: Male
  Weight: 97.61 kg

DRUGS (2)
  1. NIASPAN [Suspect]
     Route: 048
  2. NIASPAN [Suspect]
     Indication: HIGH DENSITY LIPOPROTEIN DECREASED
     Route: 048
     Dates: start: 19920101

REACTIONS (1)
  - INTERCEPTED DRUG ADMINISTRATION ERROR [None]
